FAERS Safety Report 9405466 (Version 1)
Quarter: 2013Q3

REPORT INFORMATION
  Report Type: Spontaneous
  Country: SE (occurrence: SE)
  Receive Date: 20130717
  Receipt Date: 20130717
  Transmission Date: 20140515
  Serious: Yes (Disabling)
  Sender: FDA-Public Use
  Company Number: SE-BRISTOL-MYERS SQUIBB COMPANY-18897017

PATIENT
  Age: 56 Year
  Sex: Female

DRUGS (9)
  1. ABILIFY [Suspect]
     Route: 048
     Dates: start: 201011
  2. LYRICA [Suspect]
     Route: 048
  3. SUBUTEX [Suspect]
     Route: 048
  4. VENLAFAXINE HCL [Suspect]
     Route: 048
  5. THERALEN [Concomitant]
     Dosage: AT NIGHT
     Route: 048
  6. ENTOCORT [Concomitant]
     Dosage: TABS
     Route: 048
  7. FOLACIN [Concomitant]
     Dosage: TABS
     Route: 048
  8. FURIX [Concomitant]
     Dosage: TABS
     Route: 048
  9. IMOVANE [Concomitant]
     Dosage: 1.5 AT NIGHT

REACTIONS (3)
  - Myopathy [Unknown]
  - Camptocormia [Unknown]
  - Off label use [Unknown]
